FAERS Safety Report 14536734 (Version 1)
Quarter: 2018Q1

REPORT INFORMATION
  Report Type: Spontaneous
  Country: FR (occurrence: FR)
  Receive Date: 20180215
  Receipt Date: 20180215
  Transmission Date: 20180509
  Serious: Yes (Hospitalization)
  Sender: FDA-Public Use
  Company Number: FR-TEVA-2018-FR-856110

PATIENT
  Age: 69 Year
  Sex: Male
  Weight: 80 kg

DRUGS (7)
  1. ESOMEPRAZOLE [Suspect]
     Active Substance: ESOMEPRAZOLE
     Indication: PROPHYLAXIS AGAINST GASTROINTESTINAL ULCER
     Dosage: 40 MILLIGRAM DAILY;
     Route: 048
     Dates: start: 20171109
  2. SPECIAFOLDINE 5 MG, [Concomitant]
     Dosage: 2 DOSAGE FORMS DAILY;
     Route: 048
     Dates: start: 20171109
  3. INNOHEP [Concomitant]
     Active Substance: TINZAPARIN SODIUM
     Dosage: 1 DOSAGE FORMS DAILY;
     Route: 058
     Dates: start: 20171109
  4. TARDYFERON 80 MG, [Concomitant]
     Dosage: 2 DOSAGE FORMS DAILY;
     Route: 048
     Dates: start: 20171109
  5. KETOPROFENE [Suspect]
     Active Substance: KETOPROFEN
     Indication: PAIN
     Dosage: 200 MILLIGRAM DAILY;
     Route: 048
     Dates: start: 20171109
  6. PARACETAMOL [Suspect]
     Active Substance: ACETAMINOPHEN
     Indication: PAIN
     Dosage: 3 GRAM DAILY;
     Route: 048
     Dates: start: 20171109, end: 20171110
  7. IZALGI 500 MG/25 MG, [Suspect]
     Active Substance: ACETAMINOPHEN\OPIUM
     Indication: PROPHYLAXIS
     Dosage: 3 DOSAGE FORMS DAILY;
     Route: 048
     Dates: start: 20171109, end: 20171110

REACTIONS (1)
  - Pancreatitis acute [Recovering/Resolving]

NARRATIVE: CASE EVENT DATE: 20171110
